FAERS Safety Report 13687154 (Version 5)
Quarter: 2021Q1

REPORT INFORMATION
  Report Type: Report from Study
  Country: US (occurrence: US)
  Receive Date: 20170623
  Receipt Date: 20210224
  Transmission Date: 20210419
  Serious: Yes (Hospitalization, Other)
  Sender: FDA-Public Use
  Company Number: US-SA-2017SA112458

PATIENT
  Age: 18 Month
  Sex: Female

DRUGS (2)
  1. ALGLUCOSIDASE ALFA [Suspect]
     Active Substance: ALGLUCOSIDASE ALFA
     Indication: GLYCOGEN STORAGE DISEASE TYPE II
  2. ALGLUCOSIDASE ALFA [Suspect]
     Active Substance: ALGLUCOSIDASE ALFA
     Indication: GLYCOGEN STORAGE DISORDER
     Dosage: 400 MG, QOW
     Route: 041
     Dates: start: 20160303

REACTIONS (11)
  - Oedema peripheral [Unknown]
  - Femur fracture [Unknown]
  - Unresponsive to stimuli [Not Recovered/Not Resolved]
  - Muscular weakness [Unknown]
  - Dyspnoea [Unknown]
  - Wean from ventilator [Recovering/Resolving]
  - Illness [Not Recovered/Not Resolved]
  - Heart rate increased [Unknown]
  - Respiratory tract congestion [Unknown]
  - Cardiomyopathy [Unknown]
  - Blood pressure decreased [Recovered/Resolved]

NARRATIVE: CASE EVENT DATE: 20170318
